FAERS Safety Report 21251709 (Version 1)
Quarter: 2022Q3

REPORT INFORMATION
  Report Type: Report from Study
  Country: US (occurrence: US)
  Receive Date: 20220825
  Receipt Date: 20220825
  Transmission Date: 20221026
  Serious: Yes (Other)
  Sender: FDA-Public Use
  Company Number: US-HRAPH01-2022000411

PATIENT
  Age: 69 Year
  Sex: Female

DRUGS (17)
  1. LYSODREN [Suspect]
     Active Substance: MITOTANE
     Indication: Adrenal gland cancer
     Dosage: UPTITRATED TO 03 TABLETS (1500 MG TOTAL) BY MOUTH THREE TIMES DAILY
     Route: 048
     Dates: start: 20220121
  2. ALBUTEROL SULFATE [Concomitant]
     Active Substance: ALBUTEROL SULFATE
     Indication: Product used for unknown indication
  3. BENADRYL [Concomitant]
     Active Substance: DIPHENHYDRAMINE HYDROCHLORIDE
     Indication: Product used for unknown indication
  4. CARVEDILOL [Concomitant]
     Active Substance: CARVEDILOL
     Indication: Product used for unknown indication
  5. FUROSEMIDE TAB 20MG [Concomitant]
     Indication: Product used for unknown indication
  6. HYDROCORTTAB 20MG [Concomitant]
     Indication: Product used for unknown indication
  7. MECLIZINE TAB 12.5MG [Concomitant]
     Indication: Product used for unknown indication
  8. OMEPRAZOLE [Concomitant]
     Active Substance: OMEPRAZOLE
     Indication: Product used for unknown indication
  9. ONDANSETRON TAB 8MG ODT [Concomitant]
     Indication: Product used for unknown indication
  10. POTCHLORIDE TAB 20MEQ ER [Concomitant]
     Indication: Product used for unknown indication
  11. PROAIR HFA [Concomitant]
     Active Substance: ALBUTEROL SULFATE
     Indication: Product used for unknown indication
  12. QVAR REDIHA AER 80MCG [Concomitant]
     Indication: Product used for unknown indication
  13. SAVAYSA TAB 60MG [Concomitant]
     Indication: Product used for unknown indication
  14. SERTRALINE TAB 25MG [Concomitant]
     Indication: Product used for unknown indication
  15. SINGULAIR [Concomitant]
     Active Substance: MONTELUKAST SODIUM
     Indication: Product used for unknown indication
  16. SPIRIVA [Concomitant]
     Active Substance: TIOTROPIUM BROMIDE MONOHYDRATE
     Indication: Product used for unknown indication
  17. ZYRTEC ALLGY TAB 10MG [Concomitant]
     Indication: Product used for unknown indication

REACTIONS (9)
  - Neuropathy peripheral [Not Recovered/Not Resolved]
  - Constipation [Not Recovered/Not Resolved]
  - Peripheral swelling [Unknown]
  - Decreased appetite [Not Recovered/Not Resolved]
  - Taste disorder [Unknown]
  - Balance disorder [Not Recovered/Not Resolved]
  - Fatigue [Unknown]
  - Rash pruritic [Unknown]
  - Dizziness [Not Recovered/Not Resolved]

NARRATIVE: CASE EVENT DATE: 20220101
